FAERS Safety Report 5012912-9 (Version None)
Quarter: 2006Q2

REPORT INFORMATION
  Report Type: 
  Country: None (occurrence: None)
  Receive Date: 20060530
  Receipt Date: 20060519
  Transmission Date: 20061013
  Serious: Yes (Other)
  Sender: FDA-Public Use
  Company Number: GB-JNJFOC-20060505047

PATIENT
  Age: 12 Year
  Sex: Female

DRUGS (1)
  1. CONCERTA [Suspect]
     Route: 048

REACTIONS (1)
  - SKULL FRACTURE [None]
